FAERS Safety Report 9285443 (Version 1)
Quarter: 2013Q2

REPORT INFORMATION
  Report Type: Spontaneous
  Country: US (occurrence: None)
  Receive Date: 20130510
  Receipt Date: 20130510
  Transmission Date: 20140414
  Serious: Yes (Death, Hospitalization)
  Sender: FDA-Public Use
  Company Number: None

PATIENT
  Age: 57 Year
  Sex: Female
  Weight: 51.1 kg

DRUGS (5)
  1. HALCION [Suspect]
     Indication: DENTAL OPERATION
     Dosage: 0.25MG  ONCE  PO?RECENT
     Route: 048
  2. FLECAINIDE [Concomitant]
  3. NEBIVOLOL [Concomitant]
  4. IBUPROFEN [Concomitant]
  5. TYLENOL + CODEINE [Concomitant]

REACTIONS (12)
  - Cardiac arrest [None]
  - Pulse absent [None]
  - Apnoea [None]
  - Brain oedema [None]
  - Anoxia [None]
  - Brain injury [None]
  - Unresponsive to stimuli [None]
  - Pupil fixed [None]
  - Sedation [None]
  - Brain death [None]
  - Coma [None]
  - Organ donor [None]
